FAERS Safety Report 5177305-2 (Version None)
Quarter: 2006Q4

REPORT INFORMATION
  Report Type: 
  Country: None (occurrence: None)
  Receive Date: 20061218
  Receipt Date: 20061211
  Transmission Date: 20070319
  Serious: Yes (Hospitalization)
  Sender: FDA-Public Use
  Company Number: 2006CG02024

PATIENT
  Age: 46 Year
  Sex: Female

DRUGS (3)
  1. DIPRIVAN [Suspect]
     Indication: GENERAL ANAESTHESIA
     Route: 042
  2. ZOMIG [Suspect]
     Indication: HEADACHE
     Route: 048
  3. ORAL CONTRACEPTIVE [Concomitant]
     Route: 048

REACTIONS (3)
  - PROTEIN S DEFICIENCY [None]
  - PULMONARY EMBOLISM [None]
  - SUPERIOR SAGITTAL SINUS THROMBOSIS [None]
